FAERS Safety Report 24246060 (Version 1)
Quarter: 2024Q3

REPORT INFORMATION
  Report Type: Spontaneous
  Country: GB (occurrence: GB)
  Receive Date: 20240824
  Receipt Date: 20240824
  Transmission Date: 20241017
  Serious: Yes (Other)
  Sender: ACCORD
  Company Number: None

PATIENT
  Sex: Male
  Weight: 89 kg

DRUGS (4)
  1. SERTRALINE [Interacting]
     Active Substance: SERTRALINE HYDROCHLORIDE
     Indication: Product used for unknown indication
     Dosage: AT NIGHT
  2. AMOXICILLIN [Interacting]
     Active Substance: AMOXICILLIN
     Indication: Tooth infection
  3. CLOPIDOGREL [Concomitant]
     Active Substance: CLOPIDOGREL BISULFATE
  4. SIMVASTATIN [Concomitant]
     Active Substance: SIMVASTATIN

REACTIONS (6)
  - Depressed mood [Recovered/Resolved]
  - Dyspepsia [Unknown]
  - Faeces pale [Unknown]
  - Faeces soft [Unknown]
  - Drug interaction [Recovered/Resolved]
  - Frequent bowel movements [Unknown]
